FAERS Safety Report 7559744-5 (Version None)
Quarter: 2011Q2

REPORT INFORMATION
  Report Type: 
  Country: None (occurrence: None)
  Receive Date: 20110621
  Receipt Date: 20110609
  Transmission Date: 20111010
  Serious: No
  Sender: FDA-Public Use
  Company Number: JP-ACTELION-A-CH2011-47952

PATIENT
  Sex: Female
  Weight: 69 kg

DRUGS (8)
  1. TRACLEER [Suspect]
     Indication: PULMONARY HYPERTENSION
     Dosage: 62.5 MG, BID
     Route: 048
     Dates: start: 20110414, end: 20110421
  2. CODEINE SULFATE [Concomitant]
  3. FUROSEMIDE [Concomitant]
  4. CANDESARTAN CILEXETIL [Concomitant]
  5. CARBOCISTEINE [Concomitant]
  6. MAGNESIUM OXIDE [Concomitant]
  7. TADALAFIL [Concomitant]
  8. OXYGEN [Concomitant]

REACTIONS (3)
  - PRURITUS [None]
  - EOSINOPHIL COUNT INCREASED [None]
  - PYREXIA [None]
